FAERS Safety Report 5905146-4 (Version None)
Quarter: 2008Q4

REPORT INFORMATION
  Report Type: 
  Country: None (occurrence: None)
  Receive Date: 20081001
  Receipt Date: 20080924
  Transmission Date: 20090506
  Serious: Yes (Hospitalization)
  Sender: FDA-Public Use
  Company Number: BR-ABBOTT-08P-020-0478327-00

PATIENT
  Age: 23 Year
  Sex: Male
  Weight: 72 kg

DRUGS (2)
  1. KALETRA [Suspect]
     Indication: HIV INFECTION
     Dosage: 800MG/200MG 2 TABS EVERY 12 HRS
     Route: 048
     Dates: start: 20080914
  2. CLINDAMYCIN HCL [Concomitant]
     Indication: PRURITUS
     Route: 048
     Dates: start: 20080914

REACTIONS (3)
  - DRY SKIN [None]
  - ERYTHEMA [None]
  - POISONING [None]
